FAERS Safety Report 6686433-1 (Version None)
Quarter: 2010Q2

REPORT INFORMATION
  Report Type: 
  Country: None (occurrence: None)
  Receive Date: 20100419
  Receipt Date: 20100412
  Transmission Date: 20101027
  Serious: Yes (Hospitalization)
  Sender: FDA-Public Use
  Company Number: B0636218A

PATIENT
  Sex: Male

DRUGS (2)
  1. LAMICTAL [Suspect]
     Indication: EPILEPSY
     Route: 048
     Dates: start: 20100125, end: 20100221
  2. SELENICA R [Concomitant]
     Dosage: 700MG PER DAY
     Route: 048
     Dates: start: 20000101

REACTIONS (5)
  - DECREASED APPETITE [None]
  - LIP EROSION [None]
  - PYREXIA [None]
  - RASH [None]
  - RASH GENERALISED [None]
